FAERS Safety Report 18822381 (Version 1)
Quarter: 2021Q1

REPORT INFORMATION
  Report Type: Spontaneous
  Country: MY (occurrence: MY)
  Receive Date: 20210202
  Receipt Date: 20210202
  Transmission Date: 20210419
  Serious: Yes (Congenital Anomaly)
  Sender: FDA-Public Use
  Company Number: MY-OTSUKA-2021_002616

PATIENT

DRUGS (2)
  1. DACOGEN [Suspect]
     Active Substance: DECITABINE
     Indication: ACUTE MYELOID LEUKAEMIA
     Dosage: 5 DAYS EVERY 28?DAYS FIRST CYCLE FROM 15?JUL?2016 (10 MG/M2,1 IN 28 D)
     Route: 064
     Dates: start: 20160715
  2. DACOGEN [Suspect]
     Active Substance: DECITABINE
     Dosage: 5 DAYS EVERY 28?DAYS SIXTH CYCLE FROM 15?JUL?2016 (10 MG/M2,1 IN 28 D)
     Route: 064
     Dates: start: 20170207

REACTIONS (8)
  - Polydactyly [Unknown]
  - Congenital foot malformation [Unknown]
  - Cleft lip and palate [Unknown]
  - Skull malformation [Unknown]
  - Hypotelorism of orbit [Unknown]
  - Foetal exposure during pregnancy [Unknown]
  - Holoprosencephaly [Unknown]
  - Foetal malformation [Unknown]

NARRATIVE: CASE EVENT DATE: 2017
